FAERS Safety Report 8906229 (Version 1)
Quarter: 2012Q4

REPORT INFORMATION
  Report Type: Spontaneous
  Country: US (occurrence: None)
  Receive Date: 20121108
  Receipt Date: 20121108
  Transmission Date: 20130627
  Serious: Yes (Hospitalization, Other)
  Sender: FDA-Public Use
  Company Number: 2012-2519-LIT

PATIENT
  Age: 54 Year
  Sex: Female

DRUGS (2)
  1. ESTRADIOL [Suspect]
     Indication: HORMONE REPLACEMENT THERAPY
  2. BISACODYL [Suspect]
     Dosage: 3 Tablets, Oral

REACTIONS (4)
  - Haematochezia [None]
  - Leukocytosis [None]
  - Colitis [None]
  - Colitis ischaemic [None]
